FAERS Safety Report 5019672-6 (Version None)
Quarter: 2006Q2

REPORT INFORMATION
  Report Type: 
  Country: None (occurrence: None)
  Receive Date: 20060601
  Receipt Date: 20060426
  Transmission Date: 20061013
  Serious: Yes (Hospitalization)
  Sender: FDA-Public Use
  Company Number: 2006059078

PATIENT
  Age: 63 Year
  Sex: Female

DRUGS (1)
  1. CELEBREX [Suspect]
     Indication: ARTHRITIS
     Dosage: UNKNOWN (200 MG, UNKNOWN), UNKNOWN
     Route: 065

REACTIONS (6)
  - CARDIAC DISORDER [None]
  - CARDIAC FIBRILLATION [None]
  - CARDIAC VALVE DISEASE [None]
  - DYSPEPSIA [None]
  - HEART RATE IRREGULAR [None]
  - MYOCARDIAL INFARCTION [None]
